FAERS Safety Report 7442007-6 (Version None)
Quarter: 2011Q2

REPORT INFORMATION
  Report Type: 
  Country: None (occurrence: None)
  Receive Date: 20110428
  Receipt Date: 20110104
  Transmission Date: 20111010
  Serious: No
  Sender: FDA-Public Use
  Company Number: US-ASTRAZENECA-2011SE00507

PATIENT
  Age: 50 Year
  Sex: Male

DRUGS (4)
  1. ZOMIG [Suspect]
     Dosage: HALF OR QUATERS TABLET
     Route: 048
  2. PREVACID [Concomitant]
     Indication: ABDOMINAL DISCOMFORT
  3. AMITRIPTYLINE [Concomitant]
     Indication: MIGRAINE
     Route: 048
  4. ZOMIG [Suspect]
     Indication: MIGRAINE
     Route: 048

REACTIONS (4)
  - INCORRECT DOSE ADMINISTERED [None]
  - FRUSTRATION [None]
  - HEADACHE [None]
  - FEELING ABNORMAL [None]
